FAERS Safety Report 5578515-2 (Version None)
Quarter: 2007Q4

REPORT INFORMATION
  Report Type: 
  Country: None (occurrence: None)
  Receive Date: 20071227
  Receipt Date: 20071218
  Transmission Date: 20080405
  Serious: Yes (Life-Threatening)
  Sender: FDA-Public Use
  Company Number: OSCN-NO-0712S-0507

PATIENT
  Age: 50 Year
  Sex: Female

DRUGS (16)
  1. OMNISCAN [Suspect]
     Indication: BACK PAIN
     Dates: start: 19990101
  2. OMNISCAN [Suspect]
     Indication: EXTRADURAL ABSCESS
     Dates: start: 19990101
  3. OMNISCAN [Suspect]
     Indication: INTERVERTEBRAL DISCITIS
     Dates: start: 19990101
  4. OMNISCAN [Suspect]
     Indication: INTRACRANIAL ANEURYSM
     Dates: start: 19990101
  5. OMNISCAN [Suspect]
     Indication: BACK PAIN
     Dates: start: 20000101
  6. OMNISCAN [Suspect]
     Indication: EXTRADURAL ABSCESS
     Dates: start: 20000101
  7. OMNISCAN [Suspect]
     Indication: INTERVERTEBRAL DISCITIS
     Dates: start: 20000101
  8. OMNISCAN [Suspect]
     Indication: INTRACRANIAL ANEURYSM
     Dates: start: 20000101
  9. OMNISCAN [Suspect]
     Indication: BACK PAIN
     Dates: start: 20010101
  10. OMNISCAN [Suspect]
     Indication: EXTRADURAL ABSCESS
     Dates: start: 20010101
  11. OMNISCAN [Suspect]
     Indication: INTERVERTEBRAL DISCITIS
     Dates: start: 20010101
  12. OMNISCAN [Suspect]
     Indication: INTRACRANIAL ANEURYSM
     Dates: start: 20010101
  13. OMNISCAN [Suspect]
     Indication: BACK PAIN
     Dates: start: 20010101
  14. OMNISCAN [Suspect]
     Indication: EXTRADURAL ABSCESS
     Dates: start: 20010101
  15. OMNISCAN [Suspect]
     Indication: INTERVERTEBRAL DISCITIS
     Dates: start: 20010101
  16. OMNISCAN [Suspect]
     Indication: INTRACRANIAL ANEURYSM
     Dates: start: 20010101

REACTIONS (15)
  - BIOPSY MUSCLE ABNORMAL [None]
  - CALCINOSIS [None]
  - CELLULITIS [None]
  - CONVULSION [None]
  - EXTRADURAL ABSCESS [None]
  - FISTULA [None]
  - GENERAL PHYSICAL HEALTH DETERIORATION [None]
  - INTERVERTEBRAL DISCITIS [None]
  - INTRACRANIAL ANEURYSM [None]
  - MOVEMENT DISORDER [None]
  - OEDEMA PERIPHERAL [None]
  - PARAESTHESIA [None]
  - SEPSIS [None]
  - SIGMOIDITIS [None]
  - SKIN FIBROSIS [None]
